FAERS Safety Report 13670343 (Version 1)
Quarter: 2017Q2

REPORT INFORMATION
  Report Type: Spontaneous
  Country: DE (occurrence: DE)
  Receive Date: 20170620
  Receipt Date: 20170620
  Transmission Date: 20170830
  Serious: Yes (Hospitalization)
  Sender: FDA-Public Use
  Company Number: PHHY2017DE075359

PATIENT
  Sex: Male

DRUGS (3)
  1. ATRIANCE [Suspect]
     Active Substance: NELARABINE
     Indication: ACUTE PROMYELOCYTIC LEUKAEMIA
     Dosage: 3386 MG, QD
     Route: 042
     Dates: start: 20170508, end: 20170512
  2. DEXAMETHASONE. [Concomitant]
     Active Substance: DEXAMETHASONE
     Indication: ANTIEMETIC SUPPORTIVE CARE
     Dosage: 8 MG, QD
     Route: 042
     Dates: start: 20170508, end: 20170512
  3. GRANISETRON [Concomitant]
     Active Substance: GRANISETRON
     Indication: ANTIEMETIC SUPPORTIVE CARE
     Dosage: 1 MG, QD
     Route: 042
     Dates: start: 20170508, end: 20170512

REACTIONS (10)
  - Muscular weakness [Not Recovered/Not Resolved]
  - Urinary retention [Not Recovered/Not Resolved]
  - Paralysis [Unknown]
  - Movement disorder [Not Recovered/Not Resolved]
  - Product use in unapproved indication [Unknown]
  - Polyneuropathy [Unknown]
  - Neurological symptom [Not Recovered/Not Resolved]
  - Ataxia [Unknown]
  - Paraesthesia [Unknown]
  - Autonomic neuropathy [Unknown]

NARRATIVE: CASE EVENT DATE: 20170508
